FAERS Safety Report 6712737-X (Version None)
Quarter: 2010Q2

REPORT INFORMATION
  Report Type: 
  Country: None (occurrence: None)
  Receive Date: 20100506
  Receipt Date: 20100506
  Transmission Date: 20101027
  Serious: Yes (Hospitalization)
  Sender: FDA-Public Use
  Company Number: None

PATIENT
  Sex: Female
  Weight: 97.6 kg

DRUGS (3)
  1. CYTARABINE [Suspect]
     Dosage: 1512 MG
     Dates: end: 20090114
  2. DAUNORUBICIN HCL [Suspect]
     Dosage: 582 MG
     Dates: end: 20090110
  3. ETOPOSIDE [Suspect]
     Dosage: 648 MG
     Dates: end: 20090110

REACTIONS (13)
  - ALANINE AMINOTRANSFERASE INCREASED [None]
  - ASPARTATE AMINOTRANSFERASE INCREASED [None]
  - BLOOD ALKALINE PHOSPHATASE INCREASED [None]
  - BLOOD BILIRUBIN INCREASED [None]
  - CELLS IN URINE [None]
  - CHILLS [None]
  - DEHYDRATION [None]
  - DIARRHOEA INFECTIOUS [None]
  - FAECES DISCOLOURED [None]
  - GASTROENTERITIS VIRAL [None]
  - HYPOPHAGIA [None]
  - PNEUMONIA [None]
  - URINE LEUKOCYTE ESTERASE POSITIVE [None]
